FAERS Safety Report 5731527-8 (Version None)
Quarter: 2008Q2

REPORT INFORMATION
  Report Type: 
  Country: None (occurrence: None)
  Receive Date: 20080506
  Receipt Date: 20080506
  Transmission Date: 20081010
  Serious: No
  Sender: FDA-Public Use
  Company Number: None

PATIENT
  Age: 23 Year
  Sex: Male
  Weight: 68.0396 kg

DRUGS (2)
  1. ACCUTANE [Suspect]
     Indication: ACNE
     Dosage: 40 MG BID PO
     Route: 048
     Dates: start: 19911122, end: 19920329
  2. ACCUTANE [Suspect]
     Indication: ACNE
     Dosage: 80 MG BID PO
     Route: 048
     Dates: start: 19940110, end: 19940328

REACTIONS (4)
  - ERECTILE DYSFUNCTION [None]
  - NERVOUS SYSTEM DISORDER [None]
  - SENSORY LOSS [None]
  - SEXUAL DYSFUNCTION [None]
